FAERS Safety Report 5199817-8 (Version None)
Quarter: 2007Q1

REPORT INFORMATION
  Report Type: 
  Country: None (occurrence: None)
  Receive Date: 20070105
  Receipt Date: 20061226
  Transmission Date: 20070707
  Serious: Yes (Hospitalization)
  Sender: FDA-Public Use
  Company Number: FR-AVENTIS-200614563FR

PATIENT
  Age: 89 Year
  Sex: Female

DRUGS (6)
  1. LASIX [Suspect]
     Route: 048
  2. CELESTENE                          /00008501/ [Suspect]
     Route: 048
     Dates: start: 20061102, end: 20061127
  3. DIPROLENE [Suspect]
     Route: 061
     Dates: start: 20061102, end: 20061127
  4. LEVOTHYROXINE SODIUM [Suspect]
     Indication: HYPOTHYROIDISM
     Route: 048
  5. COVERSYL                           /00790701/ [Suspect]
     Route: 048
     Dates: start: 20061025
  6. COVERSYL                           /00790701/ [Suspect]
     Route: 048

REACTIONS (2)
  - CONDITION AGGRAVATED [None]
  - PEMPHIGOID [None]
